FAERS Safety Report 13108928 (Version 2)
Quarter: 2017Q1

REPORT INFORMATION
  Report Type: Spontaneous
  Country: US (occurrence: US)
  Receive Date: 20170112
  Receipt Date: 20170127
  Transmission Date: 20170428
  Serious: No
  Sender: FDA-Public Use
  Company Number: US-GLAXOSMITHKLINE-US2017GSK003477

PATIENT
  Sex: Male

DRUGS (1)
  1. ADVAIR HFA [Suspect]
     Active Substance: FLUTICASONE PROPIONATE\SALMETEROL XINAFOATE
     Indication: PRODUCT USED FOR UNKNOWN INDICATION
     Dosage: UNK, U

REACTIONS (8)
  - Chronic obstructive pulmonary disease [Not Recovered/Not Resolved]
  - Adverse drug reaction [Unknown]
  - Sleep disorder [Unknown]
  - Ill-defined disorder [Unknown]
  - Chest discomfort [Unknown]
  - Dizziness [Unknown]
  - Sensory disturbance [Unknown]
  - Benign prostatic hyperplasia [Not Recovered/Not Resolved]
